FAERS Safety Report 6812190-1 (Version None)
Quarter: 2010Q3

REPORT INFORMATION
  Report Type: 
  Country: None (occurrence: None)
  Receive Date: 20100701
  Receipt Date: 20100629
  Transmission Date: 20110219
  Serious: Yes (Hospitalization)
  Sender: FDA-Public Use
  Company Number: IT-BAYER-201030638GPV

PATIENT
  Sex: Male

DRUGS (1)
  1. KETOPROFEN [Suspect]
     Indication: PRODUCT USED FOR UNKNOWN INDICATION

REACTIONS (3)
  - DYSPHAGIA [None]
  - EYE OEDEMA [None]
  - URTICARIA [None]
